FAERS Safety Report 15981788 (Version 2)
Quarter: 2019Q1

REPORT INFORMATION
  Report Type: Not Available
  Country: US (occurrence: US)
  Receive Date: 20190219
  Receipt Date: 20190306
  Transmission Date: 20190418
  Serious: No
  Sender: FDA-Public Use
  Company Number: US-NEUROCRINE BIOSCIENCES INC.-2019NBI00373

PATIENT
  Age: 60 Year
  Sex: Female

DRUGS (1)
  1. INGREZZA [Suspect]
     Active Substance: VALBENAZINE
     Indication: TARDIVE DYSKINESIA
     Route: 048
     Dates: start: 20190104

REACTIONS (9)
  - Drug ineffective [None]
  - Bone pain [Unknown]
  - Dyspnoea exertional [Unknown]
  - Myalgia [Unknown]
  - Arthralgia [Unknown]
  - Abdominal discomfort [Unknown]
  - Lethargy [Unknown]
  - Urticaria [Unknown]
  - Insomnia [Unknown]

NARRATIVE: CASE EVENT DATE: 2019
